FAERS Safety Report 4861117-0 (Version None)
Quarter: 2005Q4

REPORT INFORMATION
  Report Type: 
  Country: None (occurrence: None)
  Receive Date: 20051220
  Receipt Date: 20051214
  Transmission Date: 20060501
  Serious: Yes (Hospitalization, Other)
  Sender: FDA-Public Use
  Company Number: 2005UW18847

PATIENT
  Sex: Female

DRUGS (2)
  1. SEROQUEL [Suspect]
     Indication: BIPOLAR DISORDER
     Route: 048
  2. EFFEXOR [Concomitant]

REACTIONS (4)
  - MOUTH ULCERATION [None]
  - ORAL PAIN [None]
  - TARDIVE DYSKINESIA [None]
  - TIC [None]
